FAERS Safety Report 8945440 (Version 1)
Quarter: 2012Q4

REPORT INFORMATION
  Report Type: 
  Country: US (occurrence: US)
  Receive Date: 20121205
  Receipt Date: 20121205
  Transmission Date: 20130627
  Serious: Yes (Other)
  Sender: FDA-Public Use
  Company Number: US-UCBSA-072266

PATIENT
  Sex: Female

DRUGS (3)
  1. VIMPAT [Suspect]
  2. KEPPRA XR [Suspect]
  3. TRILEPTAL [Concomitant]

REACTIONS (1)
  - Hypercoagulation [Unknown]
